FAERS Safety Report 8249733-X (Version None)
Quarter: 2012Q2

REPORT INFORMATION
  Report Type: 
  Country: None (occurrence: None)
  Receive Date: 20120402
  Receipt Date: 20120319
  Transmission Date: 20120825
  Serious: Yes (Hospitalization)
  Sender: FDA-Public Use
  Company Number: DE-MYLANLABS-2012S1005899

PATIENT
  Age: 22 Year
  Sex: Female

DRUGS (5)
  1. LORAZEPAM [Suspect]
     Indication: INITIAL INSOMNIA
     Route: 048
  2. ARIXTRA [Suspect]
     Indication: LOWER LIMB FRACTURE
  3. ARCOXIA [Suspect]
     Indication: LOWER LIMB FRACTURE
     Route: 048
     Dates: start: 20110805, end: 20110819
  4. TRAMADOL HYDROCHLORIDE [Suspect]
     Indication: LOWER LIMB FRACTURE
     Route: 048
     Dates: start: 20110805, end: 20110819
  5. NOVALGIN [Concomitant]
     Indication: LOWER LIMB FRACTURE
     Route: 048

REACTIONS (1)
  - HEPATITIS TOXIC [None]
